FAERS Safety Report 4505453-6 (Version None)
Quarter: 2004Q4

REPORT INFORMATION
  Report Type: 
  Country: None (occurrence: None)
  Receive Date: 20041018
  Receipt Date: 20040823
  Transmission Date: 20050328
  Serious: Yes (Life-Threatening)
  Sender: FDA-Public Use
  Company Number: 207245

PATIENT
  Age: 53 Year
  Sex: Female
  Weight: 96.1 kg

DRUGS (13)
  1. XOLAIR [Suspect]
     Indication: ASTHMA
     Dosage: 225, Q2W
     Dates: start: 20030915, end: 20031229
  2. LASIX [Concomitant]
  3. DUONEB (IPRATROPIUM BROMIDE, ALBUTEROL) [Concomitant]
  4. ADVAIR (SALMETEROL XINAFOATE, FLUTICASONE PROPIONATE) [Concomitant]
  5. QVAR (BELOMETHASONE DIPROPIONATE) [Concomitant]
  6. XOPENEX (LEVALABUTEROL HYDROCHLORIDE) [Concomitant]
  7. PREDNISONE [Concomitant]
  8. NORVASC [Concomitant]
  9. FLONASE [Concomitant]
  10. THEOPHYLLINE [Concomitant]
  11. FOSAMAX [Concomitant]
  12. ALBUTEROL (ALBUTEROL SULFATE, ALBUTEROL) [Concomitant]
  13. CHONDROITIN SULFATE / GLUCOSAMINE (GLUCOSAMINE CHONDROITIN SULFATE) [Concomitant]

REACTIONS (1)
  - BLADDER CANCER [None]
